FAERS Safety Report 21837175 (Version 2)
Quarter: 2023Q1

REPORT INFORMATION
  Report Type: Report from Study
  Country: US (occurrence: US)
  Receive Date: 20230109
  Receipt Date: 20230216
  Transmission Date: 20230417
  Serious: Yes (Other)
  Sender: FDA-Public Use
  Company Number: US-UCBSA-2023000495

PATIENT
  Age: 80 Year
  Sex: Male
  Weight: 93.424 kg

DRUGS (1)
  1. ROTIGOTINE [Suspect]
     Active Substance: ROTIGOTINE
     Indication: Parkinson^s disease
     Dosage: 1 MILLIGRAM, ONCE DAILY (QD)
     Route: 062

REACTIONS (3)
  - Hernia [Not Recovered/Not Resolved]
  - Abdominal pain [Unknown]
  - Underdose [Unknown]

NARRATIVE: CASE EVENT DATE: 20221201
